FAERS Safety Report 25392761 (Version 2)
Quarter: 2025Q3

REPORT INFORMATION
  Report Type: Report from Study
  Country: US (occurrence: US)
  Receive Date: 20250603
  Receipt Date: 20250812
  Transmission Date: 20251021
  Serious: Yes (Hospitalization)
  Sender: ABBVIE
  Company Number: US-ABBVIE-6163120

PATIENT
  Age: 72 Year
  Sex: Male

DRUGS (1)
  1. SKYRIZI [Suspect]
     Active Substance: RISANKIZUMAB-RZAA
     Indication: Psoriasis
     Route: 058
     Dates: start: 20241014

REACTIONS (7)
  - Heart valve replacement [Unknown]
  - Rash erythematous [Recovering/Resolving]
  - Colitis ulcerative [Recovering/Resolving]
  - Psoriasis [Recovering/Resolving]
  - Gastrointestinal motility disorder [Recovering/Resolving]
  - Abnormal faeces [Unknown]
  - Pancreatic mass [Unknown]

NARRATIVE: CASE EVENT DATE: 20241201
